FAERS Safety Report 9128487 (Version 1)
Quarter: 2013Q1

REPORT INFORMATION
  Report Type: Spontaneous
  Country: US (occurrence: US)
  Receive Date: 20130228
  Receipt Date: 20130228
  Transmission Date: 20140127
  Serious: No
  Sender: FDA-Public Use
  Company Number: US-GLAXOSMITHKLINE-A0995642A

PATIENT
  Age: 56 Year
  Sex: Female

DRUGS (6)
  1. IMITREX [Suspect]
     Indication: MIGRAINE
     Dosage: 6MG AS REQUIRED
     Route: 058
     Dates: start: 2003
  2. PERCOCET [Concomitant]
  3. LYRICA [Concomitant]
  4. PHENERGAN [Concomitant]
  5. ZANAFLEX [Concomitant]
  6. PROSOM [Concomitant]

REACTIONS (3)
  - Injection site pruritus [Recovering/Resolving]
  - Injection site swelling [Not Recovered/Not Resolved]
  - Product quality issue [Unknown]
